FAERS Safety Report 17938463 (Version 1)
Quarter: 2020Q2

REPORT INFORMATION
  Report Type: Spontaneous
  Country: US (occurrence: US)
  Receive Date: 20200624
  Receipt Date: 20200624
  Transmission Date: 20200714
  Serious: No
  Sender: FDA-Public Use
  Company Number: US-PFIZER INC-2018299799

PATIENT
  Age: 58 Year
  Sex: Female

DRUGS (1)
  1. XELJANZ [Suspect]
     Active Substance: TOFACITINIB CITRATE
     Dosage: 5 MG, ALTERNATE DAY (MEDICATION EVERY OTHER DAY)
     Route: 048

REACTIONS (5)
  - Intentional product misuse [Unknown]
  - Confusional state [Unknown]
  - Bronchitis [Unknown]
  - Product use issue [Unknown]
  - Off label use [Unknown]
